FAERS Safety Report 8338761-1 (Version None)
Quarter: 2012Q2

REPORT INFORMATION
  Report Type: 
  Country: None (occurrence: None)
  Receive Date: 20120504
  Receipt Date: 20120425
  Transmission Date: 20120825
  Serious: Yes (Hospitalization)
  Sender: FDA-Public Use
  Company Number: FR-FRI-1000030256

PATIENT
  Sex: Male

DRUGS (9)
  1. OMEPRAZOLE [Concomitant]
     Route: 048
  2. FUROSEMIDE [Concomitant]
     Dosage: 20 MG
     Route: 048
  3. ESCITALOPRAM [Suspect]
     Route: 048
  4. COUMADIN [Suspect]
     Dosage: 2 MG
     Route: 048
     Dates: start: 20120123
  5. ALDACTONE [Concomitant]
     Dosage: 25 MG
     Route: 048
  6. CARVEDILOL [Concomitant]
     Dosage: 12.5 MG
     Route: 048
  7. RAMIPRIL [Concomitant]
     Dosage: 5 MG
     Route: 048
  8. ATORVASTATIN [Concomitant]
     Route: 048
  9. ALPRAZOLAM [Suspect]
     Route: 048

REACTIONS (3)
  - ENCEPHALOPATHY [None]
  - DISORIENTATION [None]
  - CONFUSIONAL STATE [None]
